FAERS Safety Report 25009328 (Version 5)
Quarter: 2025Q2

REPORT INFORMATION
  Report Type: Spontaneous
  Country: US (occurrence: US)
  Receive Date: 20250225
  Receipt Date: 20250425
  Transmission Date: 20250717
  Serious: No
  Sender: PFIZER
  Company Number: US-PFIZER INC-202500035069

PATIENT
  Age: 13 Year
  Sex: Male
  Weight: 67 kg

DRUGS (2)
  1. GENOTROPIN [Suspect]
     Active Substance: SOMATROPIN
     Indication: Short stature
     Dosage: 2.6 MG, DAILY
     Dates: start: 2025
  2. ANASTROZOLE [Concomitant]
     Active Substance: ANASTROZOLE
     Indication: Short stature

REACTIONS (5)
  - Product knowledge deficit [Unknown]
  - Device leakage [Unknown]
  - Product preparation issue [Unknown]
  - Wrong technique in device usage process [Unknown]
  - Drug dose omission by device [Unknown]
